FAERS Safety Report 20090195 (Version 4)
Quarter: 2022Q1

REPORT INFORMATION
  Report Type: Report from Study
  Country: US (occurrence: US)
  Receive Date: 20211119
  Receipt Date: 20220105
  Transmission Date: 20220424
  Serious: No
  Sender: FDA-Public Use
  Company Number: US-NOVARTISTESTPH-NVSC2021US265087

PATIENT
  Age: 27 Year
  Sex: Male
  Weight: 96.599 kg

DRUGS (4)
  1. TREPROSTINIL [Suspect]
     Active Substance: TREPROSTINIL
     Indication: Pulmonary arterial hypertension
     Dosage: 2 UNK, CONT (NG/KG/MIN)
     Route: 058
     Dates: start: 20211103
  2. TREPROSTINIL [Suspect]
     Active Substance: TREPROSTINIL
     Dosage: UNK
     Route: 065
  3. TREPROSTINIL [Suspect]
     Active Substance: TREPROSTINIL
     Dosage: DOSE-(16 NG/KG/MIN)/SUBCUT
     Route: 058
     Dates: start: 20211103
  4. TREPROSTINIL [Suspect]
     Active Substance: TREPROSTINIL
     Dosage: UNK
     Route: 065

REACTIONS (10)
  - Headache [Unknown]
  - Pain in extremity [Unknown]
  - Injection site erythema [Unknown]
  - Injection site pain [Unknown]
  - Haemoptysis [Unknown]
  - Rales [Unknown]
  - Diarrhoea [Unknown]
  - Cough [Unknown]
  - Tenderness [Unknown]
  - Administration site warmth [Unknown]

NARRATIVE: CASE EVENT DATE: 20211114
